FAERS Safety Report 16798616 (Version 1)
Quarter: 2019Q3

REPORT INFORMATION
  Report Type: Spontaneous
  Country: US (occurrence: US)
  Receive Date: 20190912
  Receipt Date: 20190912
  Transmission Date: 20191005
  Serious: Yes (Hospitalization)
  Sender: FDA-Public Use
  Company Number: US-C B FLEET CO INC-201908-US-002988

PATIENT
  Sex: Female

DRUGS (1)
  1. BC (ASPIRIN\CAFFEINE) [Suspect]
     Active Substance: ASPIRIN\CAFFEINE
     Indication: HEADACHE
     Dosage: 6-8 POWDERS PER DAY FOR 14 YEARS
     Route: 048

REACTIONS (4)
  - Overdose [None]
  - Tinnitus [Not Recovered/Not Resolved]
  - Incorrect product administration duration [None]
  - Renal failure [Unknown]
